FAERS Safety Report 11518110 (Version 1)
Quarter: 2015Q3

REPORT INFORMATION
  Report Type: Spontaneous
  Country: US (occurrence: US)
  Receive Date: 20150917
  Receipt Date: 20150917
  Transmission Date: 20151125
  Serious: No
  Sender: FDA-Public Use
  Company Number: US-GALDERMA-US15004727

PATIENT
  Age: 62 Year
  Sex: Female

DRUGS (4)
  1. AFRIN [Concomitant]
     Active Substance: OXYMETAZOLINE
     Dates: start: 201505, end: 201505
  2. CLINIQUE REDNESS SOLUTIONS MOISTURIZER [Concomitant]
     Route: 061
     Dates: start: 2011
  3. CLINIQUE REDNESS SOLUTIONS CLEANSER [Concomitant]
     Route: 061
     Dates: start: 2011
  4. MIRVASO [Suspect]
     Active Substance: BRIMONIDINE TARTRATE
     Indication: ROSACEA
     Dosage: 0.33%
     Route: 061
     Dates: start: 2013, end: 201505

REACTIONS (2)
  - Drug ineffective [Recovered/Resolved]
  - Inappropriate schedule of drug administration [Recovered/Resolved]
